FAERS Safety Report 12215107 (Version 1)
Quarter: 2016Q1

REPORT INFORMATION
  Report Type: Spontaneous
  Country: None (occurrence: CO)
  Receive Date: 20160328
  Receipt Date: 20160328
  Transmission Date: 20160526
  Serious: Yes (Other)
  Sender: FDA-Public Use
  Company Number: CO-POPULATION COUNCIL, INC.-1049822

PATIENT
  Age: 21 Year
  Sex: Female

DRUGS (1)
  1. JADELLE [Suspect]
     Active Substance: LEVONORGESTREL
     Route: 058
     Dates: start: 20090824

REACTIONS (2)
  - Peripheral nerve lesion [None]
  - Hypoaesthesia [None]

NARRATIVE: CASE EVENT DATE: 20090824
